FAERS Safety Report 10670379 (Version 1)
Quarter: 2014Q4

REPORT INFORMATION
  Report Type: Spontaneous
  Country: AT (occurrence: AT)
  Receive Date: 20141223
  Receipt Date: 20141223
  Transmission Date: 20150529
  Serious: Yes (Life-Threatening, Hospitalization, Other)
  Sender: FDA-Public Use
  Company Number: AT-ASTRAZENECA-2014SE97445

PATIENT
  Age: 43 Year
  Sex: Male
  Weight: 101 kg

DRUGS (13)
  1. ZYPREXA [Suspect]
     Active Substance: OLANZAPINE
     Route: 048
     Dates: start: 20130621
  2. NOZINAN [Suspect]
     Active Substance: LEVOMEPROMAZINE
     Route: 048
     Dates: start: 20130624, end: 201308
  3. ACECOMB [Suspect]
     Active Substance: HYDROCHLOROTHIAZIDE\LISINOPRIL
     Route: 048
     Dates: end: 20130619
  4. DEPAKINE [Suspect]
     Active Substance: VALPROATE SODIUM
     Route: 048
     Dates: start: 20130623
  5. AKINETON [Concomitant]
     Active Substance: BIPERIDEN HYDROCHLORIDE
     Route: 048
     Dates: start: 20130610
  6. ASPIRIN. [Suspect]
     Active Substance: ASPIRIN
     Route: 048
     Dates: start: 20130618
  7. NOZINAN [Suspect]
     Active Substance: LEVOMEPROMAZINE
     Route: 048
     Dates: start: 20130618, end: 20130623
  8. ZYPREXA [Suspect]
     Active Substance: OLANZAPINE
     Route: 048
     Dates: start: 201305, end: 20130617
  9. DEPAKINE [Suspect]
     Active Substance: VALPROATE SODIUM
     Route: 048
     Dates: start: 201301, end: 20130622
  10. ZYPREXA [Suspect]
     Active Substance: OLANZAPINE
     Route: 048
     Dates: start: 20130618, end: 20140620
  11. NOZINAN [Suspect]
     Active Substance: LEVOMEPROMAZINE
     Route: 048
     Dates: start: 201308
  12. CONCOR [Concomitant]
     Active Substance: BISOPROLOL FUMARATE
  13. NOZINAN [Suspect]
     Active Substance: LEVOMEPROMAZINE
     Route: 048
     Dates: start: 201304, end: 20130617

REACTIONS (20)
  - Pyrexia [Unknown]
  - Oral candidiasis [Unknown]
  - Chronic gastritis [Unknown]
  - Haemoglobin decreased [Unknown]
  - Mental disorder [Unknown]
  - Restlessness [Unknown]
  - Dizziness [Unknown]
  - Infection [Unknown]
  - Hyponatraemia [Recovered/Resolved]
  - General physical health deterioration [Unknown]
  - Abdominal distension [Unknown]
  - Anxiety [Unknown]
  - Sinus polyp [Unknown]
  - Polydipsia [Unknown]
  - Sleep disorder [Unknown]
  - Parkinsonism [Unknown]
  - Electrocardiogram QT prolonged [Unknown]
  - Fear of falling [Unknown]
  - Total lung capacity decreased [Unknown]
  - Pancreatic steatosis [Unknown]

NARRATIVE: CASE EVENT DATE: 20130617
